FAERS Safety Report 26107786 (Version 1)
Quarter: 2025Q4

REPORT INFORMATION
  Report Type: Spontaneous
  Country: US (occurrence: None)
  Receive Date: 20251130
  Receipt Date: 20251130
  Transmission Date: 20260118
  Serious: Yes (Disabling, Other)
  Sender: FDA-CTU
  Company Number: None

PATIENT
  Age: 40 Year
  Sex: Male
  Weight: 67.5 kg

DRUGS (1)
  1. YEZTUGO [Suspect]
     Active Substance: LENACAPAVIR SODIUM
     Indication: Prophylaxis against HIV infection
     Dosage: OTHER QUANTITY : 2 INJECTION(S)?OTHER FREQUENCY : EVERY 6 MONTHS?
     Route: 058
     Dates: end: 20251126

REACTIONS (6)
  - Product substitution issue [None]
  - Injection site nodule [None]
  - Pain [None]
  - Swelling [None]
  - Deformity [None]
  - Discomfort [None]

NARRATIVE: CASE EVENT DATE: 20251119
